FAERS Safety Report 9741958 (Version 2)
Quarter: 2013Q4

REPORT INFORMATION
  Report Type: Report from Study
  Country: GB (occurrence: GB)
  Receive Date: 20131210
  Receipt Date: 20131210
  Transmission Date: 20140711
  Serious: No
  Sender: FDA-Public Use
  Company Number: GB-ROCHE-GNE293299

PATIENT
  Age: 18 Month
  Sex: Female

DRUGS (1)
  1. ALTEPLASE [Suspect]
     Indication: INTRACRANIAL VENOUS SINUS THROMBOSIS
     Route: 042

REACTIONS (2)
  - Peripheral ischaemia [Recovered/Resolved]
  - Drug effect incomplete [Unknown]
